FAERS Safety Report 8924992 (Version 1)
Quarter: 2012Q4

REPORT INFORMATION
  Report Type: Report from Study
  Country: ES (occurrence: ES)
  Receive Date: 20121126
  Receipt Date: 20121126
  Transmission Date: 20130627
  Serious: Yes (Life-Threatening, Hospitalization)
  Sender: FDA-Public Use
  Company Number: ES-ROCHE-1159682

PATIENT
  Age: 53 Year
  Sex: Male

DRUGS (3)
  1. MYCOPHENOLATE MOFETIL [Suspect]
     Indication: RENAL TRANSPLANT
     Route: 048
     Dates: start: 20110921
  2. TACROLIMUS [Interacting]
     Indication: RENAL TRANSPLANT
     Route: 048
     Dates: start: 20100922
  3. SIMVASTATIN [Concomitant]
     Route: 048
     Dates: start: 201107

REACTIONS (1)
  - Nephropathy toxic [Recovering/Resolving]
